FAERS Safety Report 9705617 (Version 1)
Quarter: 2013Q4

REPORT INFORMATION
  Report Type: Spontaneous
  Country: US (occurrence: US)
  Receive Date: 20131122
  Receipt Date: 20131122
  Transmission Date: 20140711
  Serious: No
  Sender: FDA-Public Use
  Company Number: US-GILEAD-2008-0017347

PATIENT
  Sex: Female
  Weight: 44.91 kg

DRUGS (12)
  1. LETAIRIS [Suspect]
     Indication: PULMONARY ARTERIAL HYPERTENSION
     Route: 048
     Dates: start: 20080530
  2. COUMADIN [Concomitant]
     Dosage: AS DIRECTED
     Route: 048
  3. TRIAM-HCTZ [Concomitant]
     Route: 048
  4. NORVASC [Concomitant]
     Route: 048
  5. ACTONEL [Concomitant]
     Route: 048
  6. SYNTHROID [Concomitant]
     Route: 048
  7. IRON [Concomitant]
     Route: 048
  8. CALCIUM [Concomitant]
     Route: 048
  9. MULTIVITAMIN [Concomitant]
     Route: 048
  10. LUMIGAN 0.03% EYE DROPS [Concomitant]
     Route: 046
  11. FML-S LIQUIFILM EYE DROPS [Concomitant]
     Route: 047
  12. RESTASIS 0.05% EYE EMULSION [Concomitant]
     Route: 046

REACTIONS (1)
  - Local swelling [None]
